FAERS Safety Report 8025862-0 (Version None)
Quarter: 2012Q1

REPORT INFORMATION
  Report Type: 
  Country: None (occurrence: None)
  Receive Date: 20120105
  Receipt Date: 20110412
  Transmission Date: 20120608
  Serious: No
  Sender: FDA-Public Use
  Company Number: US-ABBOTT-11P-163-0718830-00

PATIENT
  Sex: Female
  Weight: 67.192 kg

DRUGS (4)
  1. SYNTHROID [Suspect]
     Dates: start: 20100101
  2. SYNTHROID [Suspect]
  3. SYNTHROID [Suspect]
     Indication: HYPOTHYROIDISM
     Dates: start: 20090301
  4. SUCRALAFATE [Concomitant]
     Indication: ANTACID THERAPY

REACTIONS (4)
  - DRUG INEFFECTIVE [None]
  - FATIGUE [None]
  - ABDOMINAL DISTENSION [None]
  - GASTRITIS [None]
